FAERS Safety Report 19805081 (Version 1)
Quarter: 2021Q3

REPORT INFORMATION
  Report Type: Spontaneous
  Country: US (occurrence: US)
  Receive Date: 20210908
  Receipt Date: 20210908
  Transmission Date: 20211014
  Serious: No
  Sender: FDA-Public Use
  Company Number: US-SA-2021SA294351

PATIENT
  Sex: Male
  Weight: 22.68 kg

DRUGS (7)
  1. DIPHENHYDRAMINE. [Concomitant]
     Active Substance: DIPHENHYDRAMINE
  2. EPINEPHRINE. [Concomitant]
     Active Substance: EPINEPHRINE
  3. CEREZYME [Suspect]
     Active Substance: IMIGLUCERASE
     Indication: LIPIDOSIS
     Dosage: 2400 IU, QOW
     Route: 042
     Dates: start: 20150918
  4. NORMAL SALINE [Concomitant]
     Active Substance: SODIUM CHLORIDE
  5. ACETAMINOPHEN. [Concomitant]
     Active Substance: ACETAMINOPHEN
  6. HEPARIN [Concomitant]
     Active Substance: HEPARIN SODIUM
  7. BENADRYL [Concomitant]
     Active Substance: DIPHENHYDRAMINE HYDROCHLORIDE

REACTIONS (2)
  - Device occlusion [Unknown]
  - Catheter site swelling [Unknown]
